FAERS Safety Report 21775948 (Version 2)
Quarter: 2023Q4

REPORT INFORMATION
  Report Type: Spontaneous
  Country: US (occurrence: US)
  Receive Date: 20221226
  Receipt Date: 20231220
  Transmission Date: 20240109
  Serious: No
  Sender: FDA-Public Use
  Company Number: US-Accord-276997

PATIENT
  Sex: Female
  Weight: 94.3 kg

DRUGS (1)
  1. BUPROPION HYDROCHLORIDE [Suspect]
     Active Substance: BUPROPION HYDROCHLORIDE
     Indication: Product used for unknown indication
     Dosage: ONCE A DAY, EXTENDED-?RELEASE TABLETS

REACTIONS (1)
  - Product odour abnormal [Unknown]
